FAERS Safety Report 24655840 (Version 1)
Quarter: 2024Q4

REPORT INFORMATION
  Report Type: Spontaneous
  Country: CN (occurrence: CN)
  Receive Date: 20241124
  Receipt Date: 20241124
  Transmission Date: 20250115
  Serious: Yes (Other)
  Sender: STRIDES
  Company Number: CN-STRIDES ARCOLAB LIMITED-2024SP015108

PATIENT
  Age: 37 Year
  Sex: Female

DRUGS (38)
  1. LETROZOLE [Suspect]
     Active Substance: LETROZOLE
     Indication: Breast cancer
     Dosage: UNK
     Route: 065
  2. LETROZOLE [Suspect]
     Active Substance: LETROZOLE
     Indication: Metastases to central nervous system
  3. EPIRUBICIN [Suspect]
     Active Substance: EPIRUBICIN
     Indication: Breast cancer
     Dosage: UNK, CYCLICAL (4 CYCLES)
     Route: 065
     Dates: start: 20170306, end: 20170509
  4. EPIRUBICIN [Suspect]
     Active Substance: EPIRUBICIN
     Indication: Metastases to central nervous system
  5. CYCLOPHOSPHAMIDE [Suspect]
     Active Substance: CYCLOPHOSPHAMIDE
     Indication: Breast cancer
     Dosage: UNK, CYCLICAL (4 CYCLES)
     Route: 065
     Dates: start: 20170306, end: 20170509
  6. CYCLOPHOSPHAMIDE [Suspect]
     Active Substance: CYCLOPHOSPHAMIDE
     Indication: Metastases to central nervous system
  7. DOCETAXEL [Suspect]
     Active Substance: DOCETAXEL
     Indication: Breast cancer
     Dosage: UNK, CYCLICAL (4 CYCLES)
     Route: 065
  8. DOCETAXEL [Suspect]
     Active Substance: DOCETAXEL
     Indication: Metastases to central nervous system
  9. TRASTUZUMAB [Suspect]
     Active Substance: TRASTUZUMAB
     Indication: Breast cancer
     Dosage: UNK, CYCLICAL (4 CYCLES)
     Route: 065
  10. TRASTUZUMAB [Suspect]
     Active Substance: TRASTUZUMAB
     Indication: Metastases to central nervous system
     Dosage: UNK, (TARGETED THERAPY)
     Route: 065
  11. TRASTUZUMAB [Suspect]
     Active Substance: TRASTUZUMAB
     Dosage: UNK, CYCLICAL, (21 CYCLES, EVERY 3 WEEKS)
     Route: 065
  12. TRASTUZUMAB [Suspect]
     Active Substance: TRASTUZUMAB
     Dosage: UNK
     Route: 065
  13. TRASTUZUMAB [Suspect]
     Active Substance: TRASTUZUMAB
     Dosage: UNK
     Route: 065
  14. TRASTUZUMAB [Suspect]
     Active Substance: TRASTUZUMAB
     Dosage: UNK, (SYSTEMIC)
     Route: 065
  15. GOSERELIN [Suspect]
     Active Substance: GOSERELIN
     Indication: Breast cancer
     Dosage: UNK
     Route: 065
  16. GOSERELIN [Suspect]
     Active Substance: GOSERELIN
     Indication: Metastases to central nervous system
  17. PACLITAXEL [Suspect]
     Active Substance: PACLITAXEL
     Indication: Breast cancer
     Dosage: UNK, CYCLICAL (21 CYCLES, EVERY 3 WEEKS)
     Route: 065
  18. PACLITAXEL [Suspect]
     Active Substance: PACLITAXEL
     Indication: Metastases to central nervous system
  19. PERTUZUMAB [Suspect]
     Active Substance: PERTUZUMAB
     Indication: Breast cancer
     Dosage: UNK, CYCLICAL (21 CYCLES, EVERY 3 WEEKS)
     Route: 065
  20. PERTUZUMAB [Suspect]
     Active Substance: PERTUZUMAB
     Indication: Metastases to central nervous system
     Dosage: UNK
     Route: 065
  21. PYROTINIB [Suspect]
     Active Substance: PYROTINIB
     Indication: Breast cancer
     Dosage: UNK
     Route: 065
  22. PYROTINIB [Suspect]
     Active Substance: PYROTINIB
     Indication: Metastases to central nervous system
  23. CAPECITABINE [Suspect]
     Active Substance: CAPECITABINE
     Indication: Breast cancer
     Dosage: UNK
     Route: 065
  24. CAPECITABINE [Suspect]
     Active Substance: CAPECITABINE
     Indication: Metastases to central nervous system
  25. ADO-TRASTUZUMAB EMTANSINE [Suspect]
     Active Substance: ADO-TRASTUZUMAB EMTANSINE
     Indication: Breast cancer
     Dosage: UNK, CYCLICAL (2 CYCLES)
     Route: 065
  26. ADO-TRASTUZUMAB EMTANSINE [Suspect]
     Active Substance: ADO-TRASTUZUMAB EMTANSINE
     Indication: Metastases to central nervous system
  27. NAVELBINE [Suspect]
     Active Substance: VINORELBINE TARTRATE
     Indication: Breast cancer
     Dosage: UNK
     Route: 065
  28. NAVELBINE [Suspect]
     Active Substance: VINORELBINE TARTRATE
     Indication: Metastases to central nervous system
  29. BEVACIZUMAB [Suspect]
     Active Substance: BEVACIZUMAB
     Indication: Breast cancer
     Dosage: UNK
     Route: 065
  30. BEVACIZUMAB [Suspect]
     Active Substance: BEVACIZUMAB
     Indication: Metastases to central nervous system
  31. LAPATINIB [Suspect]
     Active Substance: LAPATINIB
     Indication: Breast cancer
     Dosage: UNK, (SYSTEMIC)
     Route: 065
  32. LAPATINIB [Suspect]
     Active Substance: LAPATINIB
     Indication: Metastases to central nervous system
  33. ERIBULIN [Suspect]
     Active Substance: ERIBULIN
     Indication: Breast cancer
     Dosage: UNK, (SYSTEMIC)
     Route: 065
  34. ERIBULIN [Suspect]
     Active Substance: ERIBULIN
     Indication: Metastases to central nervous system
  35. TUCATINIB [Suspect]
     Active Substance: TUCATINIB
     Indication: Breast cancer
     Dosage: UNK
     Route: 065
     Dates: start: 20220615
  36. TUCATINIB [Suspect]
     Active Substance: TUCATINIB
     Indication: Metastases to central nervous system
  37. DISITAMAB VEDOTIN [Suspect]
     Active Substance: DISITAMAB VEDOTIN
     Indication: Breast cancer
     Dosage: UNK
     Route: 065
     Dates: start: 20220615
  38. DISITAMAB VEDOTIN [Suspect]
     Active Substance: DISITAMAB VEDOTIN
     Indication: Metastases to central nervous system

REACTIONS (7)
  - Drug ineffective for unapproved indication [Unknown]
  - Metastases to bone [Unknown]
  - Metastases to lung [Unknown]
  - Metastases to liver [Unknown]
  - Metastases to the mediastinum [Unknown]
  - Gait disturbance [Unknown]
  - Dizziness [Unknown]

NARRATIVE: CASE EVENT DATE: 20190622
